FAERS Safety Report 21969037 (Version 4)
Quarter: 2023Q2

REPORT INFORMATION
  Report Type: Report from Study
  Country: KR (occurrence: KR)
  Receive Date: 20230208
  Receipt Date: 20230407
  Transmission Date: 20230721
  Serious: Yes (Hospitalization)
  Sender: FDA-Public Use
  Company Number: KR-JNJFOC-20230201694

PATIENT
  Age: 75 Year
  Sex: Female
  Weight: 56.7 kg

DRUGS (20)
  1. TECLISTAMAB [Suspect]
     Active Substance: TECLISTAMAB
     Indication: Plasma cell myeloma
     Route: 058
     Dates: start: 20220622, end: 20221129
  2. TECLISTAMAB [Suspect]
     Active Substance: TECLISTAMAB
     Dosage: MOST RECENT DOSE 17/JAN/2023
     Route: 058
     Dates: start: 20220628
  3. DARATUMUMAB [Suspect]
     Active Substance: DARATUMUMAB
     Indication: Plasma cell myeloma
     Dosage: MOST RECENT DOSE 17-JAN-2023
     Route: 058
     Dates: start: 20220621
  4. METFORMIN HYDROCHLORIDE [Concomitant]
     Active Substance: METFORMIN HYDROCHLORIDE
     Indication: Prophylaxis
     Route: 048
     Dates: start: 20221025
  5. METFORMIN HYDROCHLORIDE [Concomitant]
     Active Substance: METFORMIN HYDROCHLORIDE
     Route: 048
     Dates: start: 20230210
  6. ULTRACET ER SEMI [Concomitant]
     Indication: Pain prophylaxis
     Route: 048
     Dates: start: 20221025
  7. BEAROBAN [Concomitant]
     Indication: Prophylaxis
     Dosage: 1 (UNIT NOT REPORTED)
     Route: 062
     Dates: start: 20221220
  8. BENZYDAMINE HYDROCHLORIDE [Concomitant]
     Active Substance: BENZYDAMINE HYDROCHLORIDE
     Indication: Infection prophylaxis
     Route: 050
     Dates: start: 20230201
  9. SODIUM BICARBONATE [Concomitant]
     Active Substance: SODIUM BICARBONATE
     Indication: Prophylaxis
     Route: 042
     Dates: start: 20230201, end: 20230213
  10. SODIUM BICARBONATE [Concomitant]
     Active Substance: SODIUM BICARBONATE
     Indication: Infection prophylaxis
     Route: 050
     Dates: start: 20230201, end: 20230215
  11. KLENZO [Concomitant]
     Indication: Infection prophylaxis
     Route: 050
     Dates: start: 20230201, end: 20230215
  12. POTASSIUM CHLORIDE [Concomitant]
     Active Substance: POTASSIUM CHLORIDE
     Indication: Hypokalaemia
     Route: 048
     Dates: start: 20230203, end: 20230208
  13. POTASSIUM CHLORIDE [Concomitant]
     Active Substance: POTASSIUM CHLORIDE
     Route: 048
     Dates: start: 20230207, end: 20230210
  14. CALCIUM GLUCONATE [Concomitant]
     Active Substance: CALCIUM GLUCONATE
     Indication: Prophylaxis
     Route: 042
     Dates: start: 20230204, end: 20230204
  15. NOVASCAN [Concomitant]
     Indication: Hypertension
     Route: 048
     Dates: start: 20230205, end: 20230207
  16. FURTMAN [Concomitant]
     Indication: Malnutrition
     Route: 042
     Dates: start: 20230207, end: 20230209
  17. VITAMINS [Concomitant]
     Active Substance: VITAMINS
     Indication: Malnutrition
     Route: 042
     Dates: start: 20230207, end: 20230209
  18. KABITWIN PERI [Concomitant]
     Indication: Malnutrition
     Route: 042
     Dates: start: 20230207, end: 20230213
  19. OLDECA [Concomitant]
     Indication: Hypertension
     Route: 048
     Dates: start: 20230207, end: 20230216
  20. CITOPCIN [CIPROFLOXACIN HYDROCHLORIDE] [Concomitant]
     Indication: Infection prophylaxis
     Route: 048
     Dates: start: 20230213, end: 20230216

REACTIONS (2)
  - Pyelonephritis acute [Recovered/Resolved]
  - Sepsis [Recovered/Resolved]

NARRATIVE: CASE EVENT DATE: 20230131
